FAERS Safety Report 18338209 (Version 1)
Quarter: 2020Q4

REPORT INFORMATION
  Report Type: Spontaneous
  Country: DK (occurrence: DK)
  Receive Date: 20201002
  Receipt Date: 20201002
  Transmission Date: 20210113
  Serious: Yes (Death, Hospitalization)
  Sender: FDA-Public Use
  Company Number: DK-TEVA-2020-DK-1835752

PATIENT
  Age: 89 Year
  Sex: Female

DRUGS (1)
  1. METHOTREXATE. [Suspect]
     Active Substance: METHOTREXATE
     Dosage: 6 DOSAGE FORMS DAILY;
     Route: 065

REACTIONS (4)
  - Inappropriate schedule of product administration [Unknown]
  - Accidental overdose [Unknown]
  - Bone marrow failure [Fatal]
  - Organ failure [Fatal]

NARRATIVE: CASE EVENT DATE: 201711
